FAERS Safety Report 9027725 (Version 1)
Quarter: 2013Q1

REPORT INFORMATION
  Report Type: Spontaneous
  Country: SE (occurrence: SE)
  Receive Date: 20130123
  Receipt Date: 20130123
  Transmission Date: 20140127
  Serious: Yes (Hospitalization)
  Sender: FDA-Public Use
  Company Number: SE-UCBSA-076110

PATIENT
  Age: 63 Year
  Sex: Male

DRUGS (6)
  1. CIMZIA [Suspect]
     Indication: RHEUMATOID ARTHRITIS
     Dates: start: 20111028, end: 20120807
  2. METOTREXATE [Suspect]
     Indication: RHEUMATOID ARTHRITIS
  3. ESIDREX [Concomitant]
     Dosage: 25MG
  4. PREDNISOLON (PFIZER) [Concomitant]
     Dosage: 5MG
  5. TROMBYL [Concomitant]
     Dosage: 75MG
  6. ORUDIS RETARD [Concomitant]

REACTIONS (2)
  - Pneumonia [Recovered/Resolved]
  - Pleurisy [Not Recovered/Not Resolved]
